FAERS Safety Report 9843269 (Version 1)
Quarter: 2014Q1

REPORT INFORMATION
  Report Type: Spontaneous
  Country: US (occurrence: US)
  Receive Date: 20140124
  Receipt Date: 20140124
  Transmission Date: 20141002
  Serious: Yes (Other)
  Sender: FDA-Public Use
  Company Number: US-ABBVIE-14P-163-1191501-00

PATIENT
  Sex: Female
  Weight: 90.8 kg

DRUGS (6)
  1. HUMIRA [Suspect]
     Indication: RHEUMATOID ARTHRITIS
  2. HUMIRA [Suspect]
     Indication: RHEUMATOID ARTHRITIS
  3. HUMIRA [Suspect]
     Dates: end: 201310
  4. HUMIRA [Suspect]
     Dates: start: 20131202
  5. METHOTREXATE [Concomitant]
     Indication: RHEUMATOID ARTHRITIS
  6. MOTRIN [Concomitant]
     Indication: RHEUMATOID ARTHRITIS

REACTIONS (10)
  - Bunion [Recovered/Resolved]
  - Rheumatoid nodule [Recovered/Resolved]
  - Musculoskeletal stiffness [Recovered/Resolved]
  - Bunion [Not Recovered/Not Resolved]
  - Foot deformity [Not Recovered/Not Resolved]
  - Rheumatoid arthritis [Not Recovered/Not Resolved]
  - Localised infection [Recovered/Resolved]
  - Urinary tract infection [Recovered/Resolved]
  - Urinary tract infection [Recovered/Resolved]
  - Osteoporosis [Not Recovered/Not Resolved]
